FAERS Safety Report 14746159 (Version 2)
Quarter: 2018Q3

REPORT INFORMATION
  Report Type: Spontaneous
  Country: US (occurrence: US)
  Receive Date: 20180411
  Receipt Date: 20180814
  Transmission Date: 20181010
  Serious: Yes (Hospitalization, Other)
  Sender: FDA-Public Use
  Company Number: US-009507513-1804USA004312

PATIENT
  Sex: Female

DRUGS (1)
  1. FOSAMAX [Suspect]
     Active Substance: ALENDRONATE SODIUM
     Indication: OSTEOPOROSIS
     Dosage: DAILY
     Route: 048
     Dates: start: 2000, end: 2008

REACTIONS (6)
  - Osteomyelitis [Unknown]
  - Osteonecrosis of jaw [Not Recovered/Not Resolved]
  - Stress [Unknown]
  - Transplant failure [Not Recovered/Not Resolved]
  - Fatigue [Unknown]
  - Dental restoration failure [Unknown]

NARRATIVE: CASE EVENT DATE: 2013
